FAERS Safety Report 15837123 (Version 1)
Quarter: 2018Q4

REPORT INFORMATION
  Report Type: Spontaneous
  Country: US (occurrence: US)
  Receive Date: 20181221
  Receipt Date: 20181221
  Transmission Date: 20190205
  Serious: No
  Sender: FDA-Public Use
  Company Number: None

PATIENT
  Age: 44 Year
  Sex: Male

DRUGS (1)
  1. MAVYRET [Suspect]
     Active Substance: GLECAPREVIR\PIBRENTASVIR
     Indication: HEPATITIS B
     Dosage: DAILY WITH FOOD AS DIRECTED
     Route: 048
     Dates: start: 201811

REACTIONS (4)
  - Frequent bowel movements [None]
  - Headache [None]
  - Bronchitis [None]
  - Fatigue [None]
